FAERS Safety Report 12783794 (Version 1)
Quarter: 2016Q3

REPORT INFORMATION
  Report Type: Report from Study
  Country: NL (occurrence: NL)
  Receive Date: 20160927
  Receipt Date: 20160927
  Transmission Date: 20161109
  Serious: Yes (Other)
  Sender: FDA-Public Use
  Company Number: PHHY2016NL130062

PATIENT
  Sex: Female

DRUGS (4)
  1. SIGNIFOR LAR [Suspect]
     Active Substance: PASIREOTIDE
     Dosage: 60 MG, SOLVENT 2 ML, QMO (ONCE EVERY 4 WEEKS)
     Route: 030
     Dates: start: 20160317
  2. SIGNIFOR LAR [Suspect]
     Active Substance: PASIREOTIDE
     Dosage: 60 MG, SOLVENT 2 ML, QMO (ONCE EVERY 4 WEEKS)
     Route: 030
     Dates: start: 20160218
  3. SIGNIFOR LAR [Suspect]
     Active Substance: PASIREOTIDE
     Indication: ACROMEGALY
     Dosage: 60 MG, SOLVENT 2 ML, QMO (ONCE EVERY 4 WEEKS)
     Route: 030
  4. SIGNIFOR LAR [Suspect]
     Active Substance: PASIREOTIDE
     Dosage: 60 MG, SOLVENT 2 ML, QMO (ONCE EVERY 4 WEEKS)
     Route: 030
     Dates: start: 20151224

REACTIONS (1)
  - Blood glucose increased [Recovered/Resolved]
